FAERS Safety Report 17601685 (Version 1)
Quarter: 2020Q1

REPORT INFORMATION
  Report Type: Spontaneous
  Country: FR (occurrence: FR)
  Receive Date: 20200331
  Receipt Date: 20200331
  Transmission Date: 20200409
  Serious: Yes (Other)
  Sender: FDA-Public Use
  Company Number: FR-ADVANZ PHARMA-202003002044

PATIENT

DRUGS (8)
  1. HYDROXYCHLOROQUINE SULFATE (AUTHORIZED GENERIC),PLAQUENIL [Suspect]
     Active Substance: HYDROXYCHLOROQUINE SULFATE
     Indication: SYSTEMIC LUPUS ERYTHEMATOSUS
     Dosage: 2 DOSAGE FORM, BID (ONE IN MORNING AND ONE IN EVENING, FILM-COATED TABLET )
     Route: 065
     Dates: start: 1999
  2. HYDROXYCHLOROQUINE SULFATE (AUTHORIZED GENERIC),PLAQUENIL [Suspect]
     Active Substance: HYDROXYCHLOROQUINE SULFATE
     Indication: PNEUMONIA LEGIONELLA
  3. AMOXLCILLIN TRIHYDRATE/POTASSIUM CLAVULANATE [Suspect]
     Active Substance: AMOXICILLIN\CLAVULANATE POTASSIUM
     Indication: CORONA VIRUS INFECTION
  4. AMOXLCILLIN TRIHYDRATE/POTASSIUM CLAVULANATE [Suspect]
     Active Substance: AMOXICILLIN\CLAVULANATE POTASSIUM
     Indication: PNEUMONIA LEGIONELLA
  5. AMOXLCILLIN TRIHYDRATE/POTASSIUM CLAVULANATE [Suspect]
     Active Substance: AMOXICILLIN\CLAVULANATE POTASSIUM
     Indication: PARONYCHIA
     Dosage: UNK
     Route: 065
  6. QUININE [Concomitant]
     Active Substance: QUININE
     Dosage: UNK
  7. LERCAN [Concomitant]
     Active Substance: LERCANIDIPINE
     Indication: BLOOD PRESSURE INCREASED
     Dosage: 10 MG
     Dates: start: 2011
  8. HYDROXYCHLOROQUINE SULFATE (AUTHORIZED GENERIC),PLAQUENIL [Suspect]
     Active Substance: HYDROXYCHLOROQUINE SULFATE
     Indication: CORONA VIRUS INFECTION
     Dosage: 3 DOSAGE FORM (FILM-COATED TABLET)
     Route: 065

REACTIONS (14)
  - Breast cancer metastatic [Unknown]
  - Malaise [Unknown]
  - Toe amputation [Unknown]
  - Intentional product misuse [Unknown]
  - Expired product administered [Unknown]
  - Systemic lupus erythematosus [Unknown]
  - Blood pressure abnormal [Unknown]
  - Dementia Alzheimer^s type [Unknown]
  - Paronychia [Unknown]
  - Skin plaque [Unknown]
  - Burning sensation [Unknown]
  - Constipation [Unknown]
  - Gait disturbance [Unknown]
  - Off label use [Unknown]

NARRATIVE: CASE EVENT DATE: 2011
